FAERS Safety Report 14243068 (Version 1)
Quarter: 2017Q4

REPORT INFORMATION
  Report Type: Spontaneous
  Country: DE (occurrence: DE)
  Receive Date: 20171201
  Receipt Date: 20171201
  Transmission Date: 20180321
  Serious: Yes (Death, Hospitalization)
  Sender: FDA-Public Use
  Company Number: DE-ABBVIE-17P-062-2138174-00

PATIENT
  Age: 83 Year
  Sex: Female
  Weight: 60 kg

DRUGS (5)
  1. VENETOCLAX. [Suspect]
     Active Substance: VENETOCLAX
     Route: 048
     Dates: start: 20170621, end: 20170627
  2. VENETOCLAX. [Suspect]
     Active Substance: VENETOCLAX
     Indication: CHRONIC LYMPHOCYTIC LEUKAEMIA
     Route: 048
     Dates: start: 20170607, end: 20170613
  3. VENETOCLAX. [Suspect]
     Active Substance: VENETOCLAX
     Route: 048
     Dates: start: 20170629
  4. VENETOCLAX. [Suspect]
     Active Substance: VENETOCLAX
     Route: 048
     Dates: start: 20170628, end: 20170628
  5. VENETOCLAX. [Suspect]
     Active Substance: VENETOCLAX
     Route: 048
     Dates: start: 20170614, end: 20170620

REACTIONS (6)
  - Death [Fatal]
  - Subdural haematoma [Unknown]
  - Memory impairment [Unknown]
  - Pruritus [Unknown]
  - Restlessness [Unknown]
  - Confusional state [Unknown]

NARRATIVE: CASE EVENT DATE: 201706
